FAERS Safety Report 16529848 (Version 2)
Quarter: 2019Q3

REPORT INFORMATION
  Report Type: Report from Study
  Country: None (occurrence: US)
  Receive Date: 20190704
  Receipt Date: 20190718
  Transmission Date: 20191004
  Serious: Yes (Death, Other)
  Sender: FDA-Public Use
  Company Number: US-ABBVIE-19K-163-2841563-00

PATIENT
  Age: 65 Year
  Sex: Female

DRUGS (1)
  1. CREON [Suspect]
     Active Substance: PANCRELIPASE AMYLASE\PANCRELIPASE LIPASE\PANCRELIPASE PROTEASE
     Indication: PANCREATIC ENZYME REPLACEMENT THERAPY
     Dosage: TWO CAPSULES EVERY MEAL
     Route: 048

REACTIONS (3)
  - Post-traumatic epilepsy [Unknown]
  - Head injury [Unknown]
  - Death [Fatal]

NARRATIVE: CASE EVENT DATE: 20190701
